FAERS Safety Report 11771340 (Version 1)
Quarter: 2015Q4

REPORT INFORMATION
  Report Type: Spontaneous
  Country: FR (occurrence: FR)
  Receive Date: 20151124
  Receipt Date: 20151124
  Transmission Date: 20160304
  Serious: Yes (Death, Other)
  Sender: FDA-Public Use
  Company Number: FR-CIPLA LTD.-2015FR08790

PATIENT

DRUGS (7)
  1. CARBOPLATIN. [Suspect]
     Active Substance: CARBOPLATIN
     Indication: OVARIAN CANCER
     Route: 065
  2. TAXEN [Suspect]
     Active Substance: TAMOXIFEN CITRATE
     Indication: OVARIAN CANCER
     Route: 065
  3. CYCLOPHOSPHOMIDE [Suspect]
     Active Substance: CYCLOPHOSPHAMIDE
     Dosage: 60 MG/KG, QD ON DAYS 1 AND 2
  4. CYCLOPHOSPHOMIDE [Suspect]
     Active Substance: CYCLOPHOSPHAMIDE
     Indication: OVARIAN CANCER
     Dosage: 3 MG/M2, ON DAY 1
  5. TOPOTECAN [Suspect]
     Active Substance: TOPOTECAN\TOPOTECAN HYDROCHLORIDE
     Indication: OVARIAN CANCER
     Dosage: AT ESCALATING DOSES (7.5, 8, 8.5, 9, 9.5 MG/M2/DAY) FROM DAY 1 TO DAY 5 AS A 30-MIN INFUSION
  6. CISPLATIN. [Suspect]
     Active Substance: CISPLATIN
     Indication: OVARIAN CANCER
     Route: 065
  7. G-CSF [Suspect]
     Active Substance: GRANULOCYTE COLONY-STIMULATING FACTOR NOS
     Indication: OVARIAN CANCER
     Dosage: 5 MICROGRAM/KG/DAY FROM DAY 6 UP TO THE TIME OF APHERESIS
     Route: 065

REACTIONS (4)
  - Malignant neoplasm progression [None]
  - Drug resistance [Unknown]
  - Disease progression [Fatal]
  - Blood alkaline phosphatase increased [Unknown]
